FAERS Safety Report 21264684 (Version 1)
Quarter: 2022Q3

REPORT INFORMATION
  Report Type: Spontaneous
  Country: US (occurrence: None)
  Receive Date: 20220827
  Receipt Date: 20220827
  Transmission Date: 20221027
  Serious: Yes (Life-Threatening, Hospitalization)
  Sender: FDA-Public Use
  Company Number: None

PATIENT
  Age: 59 Year
  Sex: Male

DRUGS (2)
  1. TOPAMAX [Suspect]
     Active Substance: TOPIRAMATE
     Indication: Seizure
     Dosage: 1 TAB BID PO?
     Route: 048
     Dates: start: 20210630, end: 20220529
  2. TOPAMAX [Suspect]
     Active Substance: TOPIRAMATE
     Indication: Migraine

REACTIONS (3)
  - Nephrolithiasis [None]
  - Acute kidney injury [None]
  - Seizure [None]

NARRATIVE: CASE EVENT DATE: 20220527
